FAERS Safety Report 5426327-2 (Version None)
Quarter: 2007Q3

REPORT INFORMATION
  Report Type: 
  Country: None (occurrence: None)
  Receive Date: 20070827
  Receipt Date: 20070822
  Transmission Date: 20080115
  Serious: Yes (Death, Other)
  Sender: FDA-Public Use
  Company Number: US-PURDUE-USA_2007_0027668

PATIENT
  Age: 35 Year
  Sex: Male

DRUGS (4)
  1. OXYCONTIN [Suspect]
     Indication: BACK PAIN
     Dosage: 20 MG, Q4- 6H
     Dates: start: 20050101, end: 20061001
  2. LEXAPRO [Concomitant]
     Dosage: UNK UNK, DAILY
  3. ALPRAZOLAM [Concomitant]
     Dosage: UNK UNK, BID
     Route: 065
  4. ANTIDEPRESSANTS [Concomitant]

REACTIONS (17)
  - ABNORMAL BEHAVIOUR [None]
  - ANXIETY [None]
  - COMPLETED SUICIDE [None]
  - CRYING [None]
  - DEPRESSION [None]
  - DRUG ABUSER [None]
  - DRUG DEPENDENCE [None]
  - DRUG WITHDRAWAL SYNDROME [None]
  - FATIGUE [None]
  - GUN SHOT WOUND [None]
  - IMPAIRED DRIVING ABILITY [None]
  - INTENTIONAL DRUG MISUSE [None]
  - MALAISE [None]
  - MENTAL DISORDER [None]
  - MOOD SWINGS [None]
  - SEDATION [None]
  - SOMNOLENCE [None]
